FAERS Safety Report 4384410-7 (Version None)
Quarter: 2004Q2

REPORT INFORMATION
  Report Type: 
  Country: None (occurrence: None)
  Receive Date: 20040624
  Receipt Date: 20040623
  Transmission Date: 20050107
  Serious: Yes (Hospitalization)
  Sender: FDA-Public Use
  Company Number: US-GLAXOSMITHKLINE-A0515727A

PATIENT
  Age: 75 Year
  Sex: Female

DRUGS (2)
  1. VALTREX [Suspect]
     Dosage: 1000MG THREE TIMES PER DAY
     Route: 048
     Dates: start: 20040429, end: 20040513
  2. TYLENOL [Concomitant]

REACTIONS (4)
  - DIARRHOEA [None]
  - DIVERTICULITIS [None]
  - HERPES ZOSTER [None]
  - RECTAL HAEMORRHAGE [None]
